FAERS Safety Report 4826945-6 (Version None)
Quarter: 2005Q4

REPORT INFORMATION
  Report Type: 
  Country: None (occurrence: None)
  Receive Date: 20051114
  Receipt Date: 20051109
  Transmission Date: 20060501
  Serious: Yes (Hospitalization)
  Sender: FDA-Public Use
  Company Number: US-AVENTIS-200519067US

PATIENT
  Age: 55 Year
  Sex: Male

DRUGS (4)
  1. TAXOTERE [Suspect]
     Indication: BREAST CANCER MALE
     Dosage: DOSE: NOT PROVIDED
     Dates: start: 20050523, end: 20050523
  2. ORAL ANTIDIABETICS [Concomitant]
     Dosage: DOSE: NOT PROVIDED
     Route: 048
  3. ADRIAMYCIN PFS [Concomitant]
     Dosage: DOSE: NOT PROVIDED
  4. CYTOXAN [Concomitant]
     Dosage: DOSE: NOT PROVIDED

REACTIONS (2)
  - MYOSITIS [None]
  - PAIN IN EXTREMITY [None]
